FAERS Safety Report 7335355-1 (Version None)
Quarter: 2011Q1

REPORT INFORMATION
  Report Type: 
  Country: None (occurrence: None)
  Receive Date: 20110307
  Receipt Date: 20110209
  Transmission Date: 20110831
  Serious: No
  Sender: FDA-Public Use
  Company Number: US-B.I. PHARMACEUTICALS,INC./RIDGEFIELD-2011-BP-05346BP

PATIENT
  Age: 66 Year
  Sex: Male

DRUGS (5)
  1. PRADAXA [Suspect]
     Indication: ATRIAL FIBRILLATION
     Dosage: 300 MG
     Route: 048
     Dates: start: 20101227
  2. VIT D [Concomitant]
     Indication: BONE DISORDER
     Dosage: 800 U
     Route: 048
  3. SIMVASTATIN [Concomitant]
     Indication: BLOOD CHOLESTEROL ABNORMAL
     Dosage: 40 MG
     Route: 048
  4. ASA [Concomitant]
     Indication: CARDIAC DISORDER
     Dosage: 81 MG
     Route: 048
  5. CARDIZEM [Concomitant]
     Indication: HYPERTENSION
     Dosage: 240 MG
     Route: 048

REACTIONS (2)
  - TINNITUS [None]
  - DYSPEPSIA [None]
